FAERS Safety Report 5546468-9 (Version None)
Quarter: 2007Q4

REPORT INFORMATION
  Report Type: 
  Country: None (occurrence: None)
  Receive Date: 20071206
  Receipt Date: 20071206
  Transmission Date: 20080405
  Serious: Yes (Other)
  Sender: FDA-Public Use
  Company Number: None

PATIENT
  Sex: Male

DRUGS (1)
  1. ABILIFY [Suspect]
     Indication: BIPOLAR DISORDER
     Dosage: 5 MG  1 PER DAY  PO
     Route: 048
     Dates: start: 20030701, end: 20040615

REACTIONS (8)
  - EXTRAPYRAMIDAL DISORDER [None]
  - MALAISE [None]
  - NAUSEA [None]
  - OFF LABEL USE [None]
  - PHARMACEUTICAL PRODUCT COMPLAINT [None]
  - TIC [None]
  - TOURETTE'S DISORDER [None]
  - WEIGHT INCREASED [None]
